FAERS Safety Report 21634823 (Version 1)
Quarter: 2022Q4

REPORT INFORMATION
  Report Type: Report from Study
  Country: FR (occurrence: FR)
  Receive Date: 20221123
  Receipt Date: 20221123
  Transmission Date: 20230113
  Serious: Yes (Other)
  Sender: FDA-Public Use
  Company Number: FR-MYLANLABS-2022M1131433

PATIENT
  Age: 21 Year

DRUGS (6)
  1. CISPLATIN [Suspect]
     Active Substance: CISPLATIN
     Indication: Hepatoblastoma
     Dosage: 80 MILLIGRAM/SQ. METER; SIOPEL 4 CHEMOTHERAPY REGIMEN: CONTINUOUS 24-HOUR INFUSION ...
     Route: 042
  2. CARBOPLATIN [Suspect]
     Active Substance: CARBOPLATIN
     Indication: Hepatoblastoma
     Dosage: UNK, CYCLE; AUC 6.6 MG/ML PER MIN IN CYCLE A 1 HOUR INFUSION PER 3 WEEKS
     Route: 042
  3. CARBOPLATIN [Suspect]
     Active Substance: CARBOPLATIN
     Dosage: UNK, CYCLE; AUC 10.6 MG/ML PER MIN IN CYCLE B 1 HOUR INFUSION PER 3 WEEKS
     Route: 042
  4. DOXORUBICIN [Suspect]
     Active Substance: DOXORUBICIN
     Indication: Hepatoblastoma
     Dosage: 60 MILLIGRAM/SQ. METER, CYCLE; SIOPEL 4 CHEMOTHERAPY REGIMEN...
     Route: 042
  5. DOXORUBICIN [Suspect]
     Active Substance: DOXORUBICIN
     Dosage: 50 MILLIGRAM/SQ. METER, CYCLE; SIOPEL 4 CHEMOTHERAPY REGIMEN...
     Route: 042
  6. DOXORUBICIN [Suspect]
     Active Substance: DOXORUBICIN
     Dosage: 40 MILLIGRAM/SQ. METER, CYCLE; SIOPEL 4 CHEMOTHERAPY REGIMEN....
     Route: 042

REACTIONS (1)
  - Cardiac dysfunction [Unknown]
